FAERS Safety Report 6638711-X (Version None)
Quarter: 2010Q1

REPORT INFORMATION
  Report Type: 
  Country: None (occurrence: None)
  Receive Date: 20100316
  Receipt Date: 20100316
  Transmission Date: 20100710
  Serious: Yes (Life-Threatening, Hospitalization)
  Sender: FDA-Public Use
  Company Number: None

PATIENT
  Sex: Female
  Weight: 76.2043 kg

DRUGS (15)
  1. PEGASYS [Suspect]
     Indication: HEPATITIS C
     Dosage: 180 MCG/0.5 ML WEEKLY SQ
     Route: 058
     Dates: start: 20100222
  2. RIBAVIRIN [Suspect]
     Indication: HEPATITIS C
     Dosage: -2- 200 MG AM; -3- 200 MG MG PM DAILY PO
     Route: 048
     Dates: start: 20100222
  3. LEXIVA [Concomitant]
  4. NORVIR [Concomitant]
  5. TRUVADA [Concomitant]
  6. HYDROXYZINE [Concomitant]
  7. NEXIUM [Concomitant]
  8. PERPHENAZINE [Concomitant]
  9. WELLBUTRIN XL [Concomitant]
  10. AMITRIPTYLINE HCL [Concomitant]
  11. NAPROSYN [Concomitant]
  12. BENZONATATE [Concomitant]
  13. DOXYCYCLINE [Concomitant]
  14. PROAIR HFA [Concomitant]
  15. BACTRIM [Concomitant]

REACTIONS (8)
  - ASTHENIA [None]
  - BLOOD POTASSIUM DECREASED [None]
  - DYSPNOEA [None]
  - MALAISE [None]
  - OXYGEN SATURATION DECREASED [None]
  - PANIC ATTACK [None]
  - UNEVALUABLE EVENT [None]
  - VOMITING [None]
